FAERS Safety Report 10411995 (Version 1)
Quarter: 2014Q3

REPORT INFORMATION
  Report Type: Spontaneous
  Country: US (occurrence: None)
  Receive Date: 20140826
  Receipt Date: 20140826
  Transmission Date: 20150326
  Serious: Yes (Hospitalization)
  Sender: FDA-Public Use
  Company Number: None

PATIENT
  Age: 64 Year
  Sex: Male
  Weight: 76.4 kg

DRUGS (26)
  1. ACTHAR [Suspect]
     Active Substance: CORTICOTROPIN
     Indication: SARCOIDOSIS
     Dosage: 1.0ML, DAILY FOR 8 DAYS, SUBCUTANEOUS?
     Route: 058
     Dates: start: 20140723, end: 20140729
  2. ADVAIR DISKUS [Concomitant]
     Active Substance: FLUTICASONE PROPIONATE\SALMETEROL XINAFOATE
  3. DILTIAZEM (CARDIZEM CD) [Concomitant]
  4. INSULIN ASPART [Concomitant]
     Active Substance: INSULIN ASPART
  5. LOTEMAX [Concomitant]
     Active Substance: LOTEPREDNOL ETABONATE
  6. ACTHAR [Suspect]
     Active Substance: CORTICOTROPIN
     Indication: SARCOIDOSIS
     Dosage: 0.5ML, 2X PER WEEK, SUBCUTANEOUS
     Route: 058
     Dates: start: 20140808
  7. NEXIUM [Concomitant]
     Active Substance: ESOMEPRAZOLE MAGNESIUM
  8. HYDROXYPROPYL CELLULOSE (LACRISERT OPHT) [Concomitant]
  9. LISINOPRIL (PRINIVIL, ZESTRIL) [Concomitant]
  10. INODAFINIL (PROVIGIL) [Concomitant]
  11. NYSTATIN (MYCOSTATIN) [Concomitant]
  12. FLOMAX [Concomitant]
     Active Substance: TAMSULOSIN HYDROCHLORIDE
  13. ABULTER (PROAIR HFA) [Concomitant]
  14. OXYCODONE (ROXICODONE) [Concomitant]
  15. CORTICOTROPIN (ACTHAR H.P.) [Concomitant]
  16. EASY TOUCH [Concomitant]
  17. FINASTERIDE (PROSCAR) [Concomitant]
     Active Substance: FINASTERIDE
  18. PREDNISONE (DELTASONE) [Concomitant]
  19. METHYLPHENIDATE (RITALIN) [Concomitant]
  20. GABAPENTIN (NEURONTIN) [Concomitant]
  21. NOVA MAX GLUCOSE TEST STRP [Concomitant]
  22. POLYETHYLENE GLYCOL (MIRALAX) [Concomitant]
  23. ATORVASTATIN (LIPITOR) [Concomitant]
  24. CYCLOSPORINE (RESTASIS OPHT) [Concomitant]
  25. INSULIN GLARGINE [Concomitant]
     Active Substance: INSULIN GLARGINE
  26. TRIAZOLAM (HALCION) [Concomitant]

REACTIONS (8)
  - Abdominal pain [None]
  - Tenderness [None]
  - Dyspnoea [None]
  - Abdominal distension [None]
  - Gastrooesophageal reflux disease [None]
  - Weight increased [None]
  - Swelling [None]
  - Haematochezia [None]

NARRATIVE: CASE EVENT DATE: 20140818
